FAERS Safety Report 25672279 (Version 1)
Quarter: 2025Q3

REPORT INFORMATION
  Report Type: Spontaneous
  Country: US (occurrence: US)
  Receive Date: 20250812
  Receipt Date: 20250812
  Transmission Date: 20251021
  Serious: No
  Sender: GALDERMA
  Company Number: US-GALDERMA-US2025010437

PATIENT

DRUGS (2)
  1. NEMLUVIO [Suspect]
     Active Substance: NEMOLIZUMAB-ILTO
     Indication: Eczema
     Route: 058
  2. NEMLUVIO [Suspect]
     Active Substance: NEMOLIZUMAB-ILTO
     Route: 058
     Dates: start: 202506, end: 202506

REACTIONS (6)
  - Anxiety [Unknown]
  - Insomnia [Recovering/Resolving]
  - Restlessness [Recovering/Resolving]
  - Nervousness [Recovering/Resolving]
  - Device use issue [Recovered/Resolved]
  - Incorrect dose administered [Recovered/Resolved]

NARRATIVE: CASE EVENT DATE: 20250601
